FAERS Safety Report 9404925 (Version 1)
Quarter: 2013Q3

REPORT INFORMATION
  Report Type: Spontaneous
  Country: GB (occurrence: None)
  Receive Date: 20130708
  Receipt Date: 20130708
  Transmission Date: 20140515
  Serious: Yes (Other)
  Sender: FDA-Public Use
  Company Number: 2013036584

PATIENT
  Age: 68 Year
  Sex: Female

DRUGS (1)
  1. PRIVIGEN [Suspect]
     Indication: CHRONIC INFLAMMATORY DEMYELINATING POLYRADICULONEUROPATHY
     Dosage: FREQUENCY 2/52

REACTIONS (4)
  - Back pain [None]
  - Pain in extremity [None]
  - Headache [None]
  - Vomiting [None]
